FAERS Safety Report 18411086 (Version 3)
Quarter: 2024Q1

REPORT INFORMATION
  Report Type: Spontaneous
  Country: PT (occurrence: PT)
  Receive Date: 20201021
  Receipt Date: 20240307
  Transmission Date: 20240410
  Serious: Yes (Other)
  Sender: FDA-Public Use
  Company Number: PT-EMA-DD-20201006-JAIN_H1-103641

PATIENT
  Age: 5 Year
  Sex: Male

DRUGS (2)
  1. AMOXICILLIN\CLAVULANIC ACID [Suspect]
     Active Substance: AMOXICILLIN\CLAVULANIC ACID
     Indication: Product used for unknown indication
     Dosage: UNK
     Route: 065
  2. ACETAMINOPHEN [Suspect]
     Active Substance: ACETAMINOPHEN
     Indication: Drug provocation test
     Dosage: 500 MILLIGRAM, QD (500 MG,1X)
     Route: 048

REACTIONS (6)
  - Nasal disorder [Unknown]
  - Angioedema [Unknown]
  - Drug hypersensitivity [Unknown]
  - Urticaria [Unknown]
  - Oedema [Unknown]
  - Hypersensitivity [Unknown]
